FAERS Safety Report 6945635-7 (Version None)
Quarter: 2010Q3

REPORT INFORMATION
  Report Type: 
  Country: None (occurrence: None)
  Receive Date: 20100827
  Receipt Date: 20100818
  Transmission Date: 20110219
  Serious: Yes (Disabling)
  Sender: FDA-Public Use
  Company Number: GB-MERCK-1007GBR00021

PATIENT
  Age: 62 Year
  Sex: Male
  Weight: 64 kg

DRUGS (3)
  1. ZETIA [Suspect]
     Indication: BLOOD CHOLESTEROL ABNORMAL
     Route: 048
     Dates: start: 20100501
  2. BETAMETHASONE [Concomitant]
     Indication: PRURITUS
     Route: 065
     Dates: start: 20100712
  3. HYDROCORTISONE [Concomitant]
     Indication: PRURITUS
     Route: 065
     Dates: start: 20100712

REACTIONS (19)
  - ABDOMINAL DISTENSION [None]
  - ABDOMINAL PAIN UPPER [None]
  - ASTHENIA [None]
  - BACK PAIN [None]
  - DANDRUFF [None]
  - DARK CIRCLES UNDER EYES [None]
  - DIARRHOEA [None]
  - DRY MOUTH [None]
  - FATIGUE [None]
  - FLATULENCE [None]
  - MYALGIA [None]
  - NAUSEA [None]
  - OBSTRUCTION [None]
  - PAIN OF SKIN [None]
  - PRURITUS [None]
  - RHINORRHOEA [None]
  - SKIN EXFOLIATION [None]
  - THIRST [None]
  - VOMITING [None]
